FAERS Safety Report 16629539 (Version 5)
Quarter: 2021Q1

REPORT INFORMATION
  Report Type: Report from Study
  Country: US (occurrence: US)
  Receive Date: 20190725
  Receipt Date: 20210205
  Transmission Date: 20210419
  Serious: Yes (Other)
  Sender: FDA-Public Use
  Company Number: US-ASTELLAS-2019US030100

PATIENT
  Age: 83 Year
  Sex: Female

DRUGS (2)
  1. MIRABEGRON [Suspect]
     Active Substance: MIRABEGRON
     Dosage: MIXED 25 MG AND 50 MG PILLS
     Route: 048
  2. MIRABEGRON [Suspect]
     Active Substance: MIRABEGRON
     Indication: PRODUCT USED FOR UNKNOWN INDICATION
     Route: 048
     Dates: start: 201901

REACTIONS (8)
  - Gait inability [Unknown]
  - Dry mouth [Unknown]
  - Arthropathy [Unknown]
  - Glossodynia [Unknown]
  - Pollakiuria [Unknown]
  - Cardiac disorder [Unknown]
  - Tooth loss [Unknown]
  - Product prescribing error [Unknown]

NARRATIVE: CASE EVENT DATE: 20210201
